FAERS Safety Report 10785188 (Version 5)
Quarter: 2015Q1

REPORT INFORMATION
  Report Type: Spontaneous
  Country: US (occurrence: US)
  Receive Date: 20150211
  Receipt Date: 20150313
  Transmission Date: 20150721
  Serious: Yes (Other)
  Sender: FDA-Public Use
  Company Number: US-AMGEN-USASP2015012148

PATIENT
  Age: 66 Year
  Sex: Female

DRUGS (1)
  1. ENBREL [Suspect]
     Active Substance: ETANERCEPT
     Indication: RHEUMATOID ARTHRITIS
     Dosage: 50 MG, QWK
     Route: 065
     Dates: start: 20140915, end: 20150226

REACTIONS (14)
  - Condition aggravated [Unknown]
  - Blood count abnormal [Recovered/Resolved]
  - Abdominal pain [Recovered/Resolved]
  - Mobility decreased [Recovered/Resolved]
  - Gastrointestinal pain [Recovered/Resolved]
  - Back pain [Not Recovered/Not Resolved]
  - Influenza like illness [Unknown]
  - Diverticulitis [Recovered/Resolved]
  - Pain in extremity [Not Recovered/Not Resolved]
  - Arthralgia [Not Recovered/Not Resolved]
  - Gait disturbance [Not Recovered/Not Resolved]
  - Nasopharyngitis [Unknown]
  - Vomiting [Recovered/Resolved]
  - Urinary tract infection [Recovered/Resolved]

NARRATIVE: CASE EVENT DATE: 201501
